FAERS Safety Report 4277519-X (Version None)
Quarter: 2004Q1

REPORT INFORMATION
  Report Type: 
  Country: None (occurrence: None)
  Receive Date: 20040121
  Receipt Date: 20040108
  Transmission Date: 20041129
  Serious: Yes (Hospitalization)
  Sender: FDA-Public Use
  Company Number: 233863

PATIENT
  Age: 68 Year
  Sex: Female
  Weight: 86.2 kg

DRUGS (1)
  1. NOVOLIN N [Suspect]
     Indication: INSULIN-REQUIRING TYPE II DIABETES MELLITUS
     Dosage: 55 IU, SUBCUTANEOUS
     Route: 058
     Dates: start: 20030601, end: 20030601

REACTIONS (3)
  - INFECTION [None]
  - RECURRING SKIN BOILS [None]
  - SKIN ULCER [None]
